FAERS Safety Report 19195761 (Version 2)
Quarter: 2022Q2

REPORT INFORMATION
  Report Type: Spontaneous
  Country: US (occurrence: US)
  Receive Date: 20210429
  Receipt Date: 20220429
  Transmission Date: 20220721
  Serious: No
  Sender: FDA-Public Use
  Company Number: US-ABBVIE-20K-163-3644661-00

PATIENT
  Age: 78 Year
  Sex: Male
  Weight: 88.530 kg

DRUGS (8)
  1. ANDROGEL [Suspect]
     Active Substance: TESTOSTERONE
     Indication: Blood testosterone decreased
     Route: 061
     Dates: start: 201909
  2. ANDROGEL [Suspect]
     Active Substance: TESTOSTERONE
     Route: 061
  3. ANDROGEL [Suspect]
     Active Substance: TESTOSTERONE
     Route: 061
  4. ANASTROZOLE [Concomitant]
     Active Substance: ANASTROZOLE
     Indication: Blood oestrogen increased
  5. ELIQUIS [Concomitant]
     Active Substance: APIXABAN
     Indication: Anticoagulant therapy
  6. SOTALOL [Concomitant]
     Active Substance: SOTALOL
     Indication: Atrial fibrillation
  7. SOTALOL [Concomitant]
     Active Substance: SOTALOL
     Indication: Blood pressure measurement
  8. SIMVASTATIN [Concomitant]
     Active Substance: SIMVASTATIN
     Indication: Blood cholesterol increased

REACTIONS (4)
  - Blood oestrogen increased [Unknown]
  - Underdose [Unknown]
  - Blood testosterone decreased [Unknown]
  - Incorrect dose administered [Unknown]

NARRATIVE: CASE EVENT DATE: 20191201
